FAERS Safety Report 13462912 (Version 2)
Quarter: 2017Q2

REPORT INFORMATION
  Report Type: Spontaneous
  Country: FR (occurrence: FR)
  Receive Date: 20170420
  Receipt Date: 20170427
  Transmission Date: 20170830
  Serious: Yes (Hospitalization, Other)
  Sender: FDA-Public Use
  Company Number: FR-GILEAD-2017-0267625

PATIENT
  Age: 50 Year
  Sex: Female
  Weight: 59 kg

DRUGS (1)
  1. SOFOSBUVIR W/VELPATASVIR [Suspect]
     Active Substance: SOFOSBUVIR\VELPATASVIR
     Indication: CHRONIC HEPATITIS C
     Dosage: 1 DF, QD
     Route: 048
     Dates: start: 20141208, end: 20150302

REACTIONS (17)
  - Thyroid mass [Unknown]
  - Urinary tract disorder [Unknown]
  - Cryoglobulinaemia [Unknown]
  - Tachycardia [Recovered/Resolved]
  - Leiomyoma [Unknown]
  - Lymphoma [Unknown]
  - Glaucoma [Unknown]
  - Vaginal haemorrhage [Recovered/Resolved]
  - Cardiac disorder [Unknown]
  - Immunoglobulins abnormal [Unknown]
  - Impaired quality of life [Unknown]
  - Nasal ulcer [Unknown]
  - Lymphatic disorder [Unknown]
  - Periarthritis [Unknown]
  - Purpura [Unknown]
  - Fatigue [Unknown]
  - Pain [Unknown]

NARRATIVE: CASE EVENT DATE: 20141217
